FAERS Safety Report 23777944 (Version 1)
Quarter: 2024Q2

REPORT INFORMATION
  Report Type: Spontaneous
  Country: US (occurrence: None)
  Receive Date: 20240423
  Receipt Date: 20240423
  Transmission Date: 20240715
  Serious: Yes (Disabling, Other)
  Sender: FDA-Public Use
  Company Number: None

PATIENT
  Age: 24 Year
  Sex: Female
  Weight: 63 kg

DRUGS (4)
  1. MONTELUKAST [Suspect]
     Active Substance: MONTELUKAST SODIUM
     Indication: Seasonal allergy
     Dates: start: 20110120, end: 20240110
  2. CYMBALTA [Concomitant]
     Active Substance: DULOXETINE HYDROCHLORIDE
  3. lamactal [Concomitant]
  4. astarys [Concomitant]

REACTIONS (10)
  - Depression [None]
  - Anxiety [None]
  - Mood swings [None]
  - Obsessive-compulsive disorder [None]
  - Attention deficit hyperactivity disorder [None]
  - Slow speech [None]
  - Disturbance in attention [None]
  - Impulsive behaviour [None]
  - Developmental delay [None]
  - Withdrawal syndrome [None]

NARRATIVE: CASE EVENT DATE: 20240110
